FAERS Safety Report 9147065 (Version 2)
Quarter: 2013Q2

REPORT INFORMATION
  Report Type: Spontaneous
  Country: GB (occurrence: None)
  Receive Date: 20130219
  Receipt Date: 20130422
  Transmission Date: 20140414
  Serious: Yes (Disabling)
  Sender: FDA-Public Use
  Company Number: GB-MACLEODS PHARMA-000062

PATIENT
  Age: 72 Year
  Sex: Female
  Weight: 62 kg

DRUGS (11)
  1. LEVOFLOXACIN [Suspect]
     Indication: LOWER RESPIRATORY TRACT INFECTION BACTERIAL
     Dosage: 500.00-MG-2,00/ ORAL TIMES PER - 1.0 DAYS
     Route: 048
     Dates: start: 20130109, end: 20130115
  2. BENDROFLUMETHAZIDE (BENDRO FLUMETHIAZIDE) [Concomitant]
  3. SERETIDE (SERETIDE) [Concomitant]
  4. TIOTROPIUM (TIOTROPIUM) [Concomitant]
  5. SENNA [Concomitant]
  6. LISINOPRIL (LISINOPRIL) [Concomitant]
  7. ALENDRONATE SODIUM (ALENDRONATE SODIUM) (ALENDRONATE SODIUM) [Concomitant]
  8. LANSOPRAZOLE (LANSOPRAZOLE) [Concomitant]
  9. DILTIAZEM [Concomitant]
  10. SALBUTAMOL (SALBUTAMOL) [Concomitant]
  11. ADCAL-D3 (ADCAL-D3) [Concomitant]

REACTIONS (4)
  - Tendonitis [None]
  - Fall [None]
  - Joint range of motion decreased [None]
  - Erythema [None]
